FAERS Safety Report 4810068-6 (Version None)
Quarter: 2005Q4

REPORT INFORMATION
  Report Type: 
  Country: None (occurrence: None)
  Receive Date: 20051024
  Receipt Date: 20051024
  Transmission Date: 20060501
  Serious: Yes (Life-Threatening, Hospitalization)
  Sender: FDA-Public Use
  Company Number: None

PATIENT
  Age: 34 Year
  Sex: Male
  Weight: 53.0709 kg

DRUGS (12)
  1. SARGRAMOSTIM 250 MCG BERLEX LABS [Suspect]
     Dosage: 250 MCG 2 DOSES INTRAMUSCULAR
     Route: 030
     Dates: start: 20050819, end: 20050919
  2. DILANTIN [Concomitant]
  3. SYNTHROID [Concomitant]
  4. DEPAKOTE [Concomitant]
  5. PROPRANOLOL [Concomitant]
  6. PAXIL [Concomitant]
  7. KALETRA [Concomitant]
  8. VIREAD [Concomitant]
  9. REYATAZ [Concomitant]
  10. CLONAZEPAM [Concomitant]
  11. LORTAB [Concomitant]
  12. MS CONTIN [Concomitant]

REACTIONS (1)
  - HYPOKALAEMIA [None]
